FAERS Safety Report 9540963 (Version 1)
Quarter: 2013Q3

REPORT INFORMATION
  Report Type: Spontaneous
  Country: US (occurrence: US)
  Receive Date: 20130922
  Receipt Date: 20130922
  Transmission Date: 20140515
  Serious: No
  Sender: FDA-Public Use
  Company Number: US-009507513-1309USA007760

PATIENT
  Age: 23 Year
  Sex: Female

DRUGS (1)
  1. NEXPLANON [Suspect]
     Indication: CONTRACEPTION
     Dosage: ONE ROD/ THREE YARS
     Route: 059
     Dates: start: 20130716

REACTIONS (4)
  - Sensation of foreign body [Not Recovered/Not Resolved]
  - Unintended pregnancy [Unknown]
  - Hypomenorrhoea [Unknown]
  - Nausea [Not Recovered/Not Resolved]
